FAERS Safety Report 9544114 (Version 2)
Quarter: 2013Q3

REPORT INFORMATION
  Report Type: Spontaneous
  Country: US (occurrence: US)
  Receive Date: 20130923
  Receipt Date: 20130925
  Transmission Date: 20140515
  Serious: No
  Sender: FDA-Public Use
  Company Number: US-TEVA-433821USA

PATIENT
  Age: 25 Year
  Sex: Female
  Weight: 76.27 kg

DRUGS (1)
  1. PARAGARD 380A [Suspect]
     Indication: CONTRACEPTION
     Route: 015
     Dates: start: 20130320, end: 20130905

REACTIONS (3)
  - Device expulsion [Recovered/Resolved]
  - Device deployment issue [Unknown]
  - Product quality issue [Unknown]
